FAERS Safety Report 5679210-1 (Version None)
Quarter: 2008Q1

REPORT INFORMATION
  Report Type: 
  Country: None (occurrence: None)
  Receive Date: 20080325
  Receipt Date: 20080318
  Transmission Date: 20080703
  Serious: Yes (Hospitalization, Other)
  Sender: FDA-Public Use
  Company Number: US-AVENTIS-200811787US

PATIENT
  Sex: Male

DRUGS (9)
  1. LANTUS [Suspect]
     Route: 058
  2. LANTUS [Suspect]
     Route: 058
  3. GLUCOPHAGE [Concomitant]
     Dosage: DOSE: UNK
  4. HYTRIN [Concomitant]
     Dosage: DOSE: UNK
  5. LIPITOR [Concomitant]
     Dosage: DOSE: UNK
  6. MULTI-VITAMINS [Concomitant]
     Dosage: DOSE: UNK
  7. ASPIRIN [Concomitant]
     Route: 048
  8. ASCORBIC ACID [Concomitant]
     Dosage: DOSE: UNK
  9. FISH OIL [Concomitant]
     Dosage: DOSE: UNK

REACTIONS (4)
  - BLOOD GLUCOSE INCREASED [None]
  - FALL [None]
  - FRACTURE [None]
  - HYPOGLYCAEMIC UNCONSCIOUSNESS [None]
